FAERS Safety Report 9364497 (Version 1)
Quarter: 2013Q2

REPORT INFORMATION
  Report Type: Spontaneous
  Country: US (occurrence: US)
  Receive Date: 20130624
  Receipt Date: 20130624
  Transmission Date: 20140414
  Serious: Yes (Other)
  Sender: FDA-Public Use
  Company Number: PHHY2013US063238

PATIENT
  Age: 92 Year
  Sex: Male

DRUGS (3)
  1. ASCRIPTIN BUFFERED REG STRENGTH TABLETS [Suspect]
     Indication: ANTIPLATELET THERAPY
     Dosage: UNK
     Route: 048
  2. ASCRIPTIN BUFFERED REG STRENGTH TABLETS [Suspect]
     Route: 048
  3. DIURETIC [Concomitant]

REACTIONS (3)
  - Type 2 diabetes mellitus [Unknown]
  - Heart rate abnormal [Unknown]
  - Incorrect drug administration duration [Unknown]
